FAERS Safety Report 9886336 (Version 1)
Quarter: 2014Q1

REPORT INFORMATION
  Report Type: Spontaneous
  Country: US (occurrence: US)
  Receive Date: 20140210
  Receipt Date: 20140210
  Transmission Date: 20141002
  Serious: Yes (Other)
  Sender: FDA-Public Use
  Company Number: US-BAYER-2014-020390

PATIENT
  Sex: Female
  Weight: 91.16 kg

DRUGS (1)
  1. MIRENA [Suspect]
     Dosage: 20 MCG/24HR, CONT
     Route: 015

REACTIONS (5)
  - Abdominal pain lower [None]
  - Genital haemorrhage [None]
  - Genital haemorrhage [None]
  - Weight increased [None]
  - Device misuse [None]
